FAERS Safety Report 11884127 (Version 1)
Quarter: 2016Q1

REPORT INFORMATION
  Report Type: Spontaneous
  Country: US (occurrence: US)
  Receive Date: 20160103
  Receipt Date: 20160103
  Transmission Date: 20160526
  Serious: Yes (Other)
  Sender: FDA-Public Use
  Company Number: US-BEH-2015057218

PATIENT
  Sex: Female
  Weight: 56 kg

DRUGS (16)
  1. DIPHENHYDRAMINE. [Concomitant]
     Active Substance: DIPHENHYDRAMINE
  2. SPIRIVA [Concomitant]
     Active Substance: TIOTROPIUM BROMIDE MONOHYDRATE
  3. PROAIR HFA [Concomitant]
     Active Substance: ALBUTEROL SULFATE
  4. DUONEB [Concomitant]
     Active Substance: ALBUTEROL SULFATE\IPRATROPIUM BROMIDE
  5. OXYGEN. [Concomitant]
     Active Substance: OXYGEN
  6. HEPARIN [Concomitant]
     Active Substance: HEPARIN SODIUM
  7. TUSSIONEX PENNKINETIC [Concomitant]
     Active Substance: CHLORPHENIRAMINE\HYDROCODONE
  8. SODIUM CHLORIDE. [Concomitant]
     Active Substance: SODIUM CHLORIDE
  9. ADVAIR HFA [Concomitant]
     Active Substance: FLUTICASONE PROPIONATE\SALMETEROL XINAFOATE
  10. ZEMAIRA [Suspect]
     Active Substance: .ALPHA.1-PROTEINASE INHIBITOR HUMAN
     Indication: ALPHA-1 ANTI-TRYPSIN DEFICIENCY
     Route: 042
  11. PREDNISONE. [Concomitant]
     Active Substance: PREDNISONE
  12. EPIPEN [Concomitant]
     Active Substance: EPINEPHRINE
  13. XANAX [Concomitant]
     Active Substance: ALPRAZOLAM
  14. AMOXICILLIN. [Concomitant]
     Active Substance: AMOXICILLIN
  15. L-M-X [Concomitant]
  16. DAPSONE. [Concomitant]
     Active Substance: DAPSONE

REACTIONS (2)
  - Pneumonia [Unknown]
  - Bronchitis [Unknown]
